FAERS Safety Report 10976935 (Version 1)
Quarter: 2015Q2

REPORT INFORMATION
  Report Type: Spontaneous
  Country: JP (occurrence: JP)
  Receive Date: 20150402
  Receipt Date: 20150402
  Transmission Date: 20150821
  Serious: Yes (Other)
  Sender: FDA-Public Use
  Company Number: JP-ROCHE-1557662

PATIENT
  Sex: Male
  Weight: 23 kg

DRUGS (11)
  1. CLEMASTINE FUMARATE. [Concomitant]
     Active Substance: CLEMASTINE FUMARATE
     Dosage: DOSAGE IS UNCERTAIN.?DRUG REPORTED AS CLE MAMALLET
     Route: 048
  2. INTAL [Concomitant]
     Active Substance: CROMOLYN SODIUM
     Dosage: DOSAGE IS UNCERTAIN.?DRUG REPORTED AS RHINOJET
     Route: 055
  3. RINDERON V [Concomitant]
     Active Substance: BETAMETHASONE VALERATE
     Dosage: DOSAGE IS UNCERTAIN.
     Route: 003
  4. CARBOCISTEINE [Concomitant]
     Active Substance: CARBOCYSTEINE
     Dosage: DOSAGE IS UNCERTAIN.
     Route: 048
  5. TULOBUTEROL [Concomitant]
     Active Substance: TULOBUTEROL
     Dosage: DOSAGE IS UNCERTAIN.
     Route: 062
  6. TAMIFLU [Suspect]
     Active Substance: OSELTAMIVIR PHOSPHATE
     Indication: INFLUENZA
     Route: 048
     Dates: start: 201412, end: 201412
  7. BESOFTEN [Concomitant]
     Active Substance: SODIUM ALGINATE
     Dosage: DOSAGE IS UNCERTAIN.
     Route: 003
  8. ASVERIN (JAPAN) [Concomitant]
     Dosage: DOSAGE IS UNCERTAIN.
     Route: 048
  9. ANYRUME [Concomitant]
     Active Substance: ACETAMINOPHEN
     Dosage: DOSAGE IS UNCERTAIN.
     Route: 048
  10. MONTELUKAST [Concomitant]
     Active Substance: MONTELUKAST SODIUM
     Dosage: DOSAGE IS UNCERTAIN.
     Route: 048
  11. MEPTIN [Concomitant]
     Active Substance: PROCATEROL HYDROCHLORIDE
     Dosage: DOSAGE IS UNCERTAIN.
     Route: 055

REACTIONS (1)
  - Abnormal behaviour [Recovered/Resolved]

NARRATIVE: CASE EVENT DATE: 201412
